FAERS Safety Report 4659357-9 (Version None)
Quarter: 2005Q2

REPORT INFORMATION
  Report Type: 
  Country: None (occurrence: None)
  Receive Date: 20050510
  Receipt Date: 20500429
  Transmission Date: 20051028
  Serious: Yes (Hospitalization)
  Sender: FDA-Public Use
  Company Number: 05P-062-0297032-00

PATIENT
  Age: 62 Year
  Sex: Male

DRUGS (6)
  1. HUMIRA [Suspect]
     Indication: RHEUMATOID ARTHRITIS
     Dosage: 40 MG, 1 IN 2 WK, SUBCUTANEOUS
     Route: 058
     Dates: start: 20030101
  2. METHOTREXATE [Concomitant]
  3. CORTISONE [Concomitant]
  4. PREDNISOLONE [Concomitant]
  5. PANTOPRAZOLE SODIUM [Concomitant]
  6. BELOC ZOK MITE [Concomitant]

REACTIONS (5)
  - BURSITIS [None]
  - CELLULITIS [None]
  - CONDITION AGGRAVATED [None]
  - SEPTIC SHOCK [None]
  - STAPHYLOCOCCAL INFECTION [None]
